FAERS Safety Report 22638316 (Version 1)
Quarter: 2023Q2

REPORT INFORMATION
  Report Type: Spontaneous
  Country: BR (occurrence: BR)
  Receive Date: 20230626
  Receipt Date: 20230626
  Transmission Date: 20230721
  Serious: Yes (Other)
  Sender: FDA-Public Use
  Company Number: BR-BoehringerIngelheim-2023-BI-245130

PATIENT
  Sex: Female

DRUGS (2)
  1. ATROVENT [Suspect]
     Active Substance: IPRATROPIUM BROMIDE
     Indication: Product used for unknown indication
  2. FENOTEROL HYDROBROMIDE\IPRATROPIUM BROMIDE [Suspect]
     Active Substance: FENOTEROL HYDROBROMIDE\IPRATROPIUM BROMIDE
     Indication: Product used for unknown indication

REACTIONS (9)
  - Cerebrovascular accident [Unknown]
  - Asthmatic crisis [Unknown]
  - Therapeutic product effect variable [Unknown]
  - Drug ineffective [Unknown]
  - Pulmonary function test decreased [Unknown]
  - Chronic obstructive pulmonary disease [Unknown]
  - Therapeutic product effect delayed [Unknown]
  - Therapeutic product effect decreased [Unknown]
  - Emotional disorder [Unknown]
